FAERS Safety Report 13605008 (Version 1)
Quarter: 2017Q2

REPORT INFORMATION
  Report Type: Spontaneous
  Country: US (occurrence: US)
  Receive Date: 20170601
  Receipt Date: 20170601
  Transmission Date: 20170830
  Serious: Yes (Hospitalization, Other)
  Sender: FDA-Public Use
  Company Number: None

PATIENT
  Age: 40 Year
  Sex: Female

DRUGS (1)
  1. XALKORI [Suspect]
     Active Substance: CRIZOTINIB
     Indication: LUNG NEOPLASM MALIGNANT
     Route: 048
     Dates: start: 20170509, end: 20170520

REACTIONS (5)
  - Pharyngeal oedema [None]
  - Pyrexia [None]
  - Rash [None]
  - Lip swelling [None]
  - Hepatic enzyme increased [None]

NARRATIVE: CASE EVENT DATE: 20170520
